FAERS Safety Report 21906641 (Version 2)
Quarter: 2023Q1

REPORT INFORMATION
  Report Type: Spontaneous
  Country: FR (occurrence: None)
  Receive Date: 20230125
  Receipt Date: 20230201
  Transmission Date: 20230418
  Serious: Yes (Death, Other)
  Sender: FDA-Public Use
  Company Number: FR-Orion Corporation ORION PHARMA-TREX2023-0015

PATIENT
  Age: 75 Year
  Sex: Male

DRUGS (4)
  1. METHOTREXATE [Suspect]
     Active Substance: METHOTREXATE
     Indication: Rheumatoid arthritis
     Route: 048
     Dates: end: 20210313
  2. COMIRNATY [Concomitant]
     Active Substance: TOZINAMERAN
     Indication: COVID-19 immunisation
     Route: 065
     Dates: start: 20210312, end: 20210312
  3. BISOPROLOL FUMARATE\HYDROCHLOROTHIAZIDE [Concomitant]
     Active Substance: BISOPROLOL FUMARATE\HYDROCHLOROTHIAZIDE
     Indication: Hypertension
     Dosage: STRENGTH:  2.5 MG/6.25 MG
     Route: 065
     Dates: end: 20210313
  4. FOLIC ACID [Concomitant]
     Active Substance: FOLIC ACID
     Indication: Hypertension
     Route: 065

REACTIONS (3)
  - Atrial fibrillation [Fatal]
  - Ischaemic stroke [Fatal]
  - Pneumonia aspiration [Fatal]

NARRATIVE: CASE EVENT DATE: 20210314
